FAERS Safety Report 5221130-0 (Version None)
Quarter: 2007Q1

REPORT INFORMATION
  Report Type: 
  Country: None (occurrence: None)
  Receive Date: 20070126
  Receipt Date: 20070118
  Transmission Date: 20070707
  Serious: Yes (Hospitalization, Other)
  Sender: FDA-Public Use
  Company Number: AU-JNJFOC-20061105701

PATIENT
  Sex: Female

DRUGS (9)
  1. REMINYL [Suspect]
     Route: 048
  2. REMINYL [Suspect]
     Indication: DEMENTIA ALZHEIMER'S TYPE
     Route: 048
  3. NOTEN [Interacting]
     Indication: DRUG USE FOR UNKNOWN INDICATION
  4. MICARDIS [Interacting]
     Indication: DRUG USE FOR UNKNOWN INDICATION
  5. LIPEX [Concomitant]
  6. PLAVIX [Concomitant]
  7. PANTOPRAZOLE SODIUM [Concomitant]
  8. ZOLOFT [Concomitant]
  9. NITROLINGUAL PUMP [Concomitant]

REACTIONS (5)
  - ABDOMINAL DISCOMFORT [None]
  - BRADYCARDIA [None]
  - DRUG INTERACTION [None]
  - DRUG INTERACTION POTENTIATION [None]
  - HYPOTENSION [None]
